FAERS Safety Report 23263932 (Version 1)
Quarter: 2023Q4

REPORT INFORMATION
  Report Type: Spontaneous
  Country: US (occurrence: None)
  Receive Date: 20231205
  Receipt Date: 20231205
  Transmission Date: 20240110
  Serious: No
  Sender: FDA-Public Use
  Company Number: None

PATIENT
  Age: 42 Year
  Sex: Female

DRUGS (1)
  1. SKYRIZI [Suspect]
     Active Substance: RISANKIZUMAB-RZAA
     Indication: Psoriasis
     Dosage: OTHER QUANTITY : 150MG (1 PEN);?OTHER FREQUENCY : EVERY 12 WEEKS;?
     Route: 058
     Dates: start: 202305

REACTIONS (1)
  - Viral infection [None]
